FAERS Safety Report 10078632 (Version 2)
Quarter: 2014Q2

REPORT INFORMATION
  Report Type: Spontaneous
  Country: JP (occurrence: JP)
  Receive Date: 20140415
  Receipt Date: 20140505
  Transmission Date: 20141212
  Serious: Yes (Death, Hospitalization)
  Sender: FDA-Public Use
  Company Number: JP-SA-2014SA043927

PATIENT
  Age: 71 Year
  Sex: Male
  Weight: 43 kg

DRUGS (4)
  1. ACETYLSALICYLIC ACID [Suspect]
     Indication: MYOCARDIAL INFARCTION
     Route: 048
     Dates: start: 2008
  2. HEPARIN (SALT NOT SPECIFIED) [Suspect]
     Indication: PROPHYLAXIS
     Route: 042
  3. HEPARIN (SALT NOT SPECIFIED) [Suspect]
     Indication: PROPHYLAXIS
     Route: 042
     Dates: start: 20110328
  4. PLAVIX [Suspect]
     Indication: CEREBRAL INFARCTION
     Route: 048
     Dates: start: 20110308, end: 20120220

REACTIONS (8)
  - Device occlusion [Unknown]
  - Subarachnoid haemorrhage [Recovered/Resolved]
  - Headache [Recovered/Resolved]
  - Vomiting [Recovered/Resolved]
  - Cerebral infarction [Recovered/Resolved with Sequelae]
  - Aphasia [Not Recovered/Not Resolved]
  - Paralysis [Not Recovered/Not Resolved]
  - Gastrointestinal haemorrhage [Fatal]
